FAERS Safety Report 21591871 (Version 2)
Quarter: 2024Q4

REPORT INFORMATION
  Report Type: Report from Study
  Country: US (occurrence: US)
  Receive Date: 20221114
  Receipt Date: 20241009
  Transmission Date: 20250114
  Serious: Yes (Death)
  Sender: NOVARTIS
  Company Number: US-002147023-NVSC2022US256174

PATIENT
  Sex: Male
  Weight: 85 kg

DRUGS (1)
  1. ENTRESTO [Suspect]
     Active Substance: SACUBITRIL\VALSARTAN
     Indication: Cardiac failure chronic
     Dosage: 24/26 MG, BID
     Route: 048
     Dates: start: 20170525

REACTIONS (1)
  - Cardiac arrest [Fatal]
